FAERS Safety Report 26085786 (Version 1)
Quarter: 2025Q4

REPORT INFORMATION
  Report Type: Report from Study
  Country: EU (occurrence: EU)
  Receive Date: 20251125
  Receipt Date: 20251125
  Transmission Date: 20260117
  Serious: Yes (Hospitalization)
  Sender: ABBVIE
  Company Number: EU-ABBVIE-6560874

PATIENT
  Age: 75 Year
  Sex: Male

DRUGS (1)
  1. FOSCARBIDOPA\FOSLEVODOPA [Suspect]
     Active Substance: FOSCARBIDOPA\FOSLEVODOPA
     Indication: Product used for unknown indication
     Dosage: FLOW RATE 1: 0.39ML/H; DURATION (H): FROM 7AM TO 9PM, FLOW RATE 2: 0.37ML/H; DURATION (H): FROM 9...
     Route: 058
     Dates: start: 20250707

REACTIONS (2)
  - Inguinal hernia, obstructive [Not Recovered/Not Resolved]
  - Inguinal hernia strangulated [Not Recovered/Not Resolved]

NARRATIVE: CASE EVENT DATE: 20251106
